FAERS Safety Report 9687716 (Version 2)
Quarter: 2013Q4

REPORT INFORMATION
  Report Type: Spontaneous
  Country: US (occurrence: US)
  Receive Date: 20131114
  Receipt Date: 20131118
  Transmission Date: 20140711
  Serious: No
  Sender: FDA-Public Use
  Company Number: US-PFIZER INC-2013320770

PATIENT
  Age: 51 Year
  Sex: Female
  Weight: 113 kg

DRUGS (4)
  1. PREMARIN [Suspect]
     Indication: OVARIAN FAILURE POSTOPERATIVE
     Dosage: 0.625 MG, 1X/DAY
     Dates: start: 2001
  2. CHANTIX [Suspect]
     Indication: SMOKING CESSATION THERAPY
     Dosage: UNK, OFF AND ON
     Dates: start: 2007
  3. ATORVASTATIN [Concomitant]
     Indication: BLOOD CHOLESTEROL ABNORMAL
     Dosage: UNK
  4. LEVOTHYROXINE [Concomitant]
     Indication: THYROID DISORDER
     Dosage: UNK

REACTIONS (3)
  - Nausea [Unknown]
  - Feeling abnormal [Unknown]
  - Aggression [Unknown]
